FAERS Safety Report 9614614 (Version 4)
Quarter: 2014Q1

REPORT INFORMATION
  Report Type: Spontaneous
  Country: IT (occurrence: IT)
  Receive Date: 20131011
  Receipt Date: 20140203
  Transmission Date: 20141002
  Serious: Yes (Death, Other)
  Sender: FDA-Public Use
  Company Number: IT-ABBVIE-13P-083-1155539-00

PATIENT
  Age: 64 Year
  Sex: Female

DRUGS (4)
  1. HUMIRA [Suspect]
     Indication: CROHN^S DISEASE
     Dates: start: 20121212, end: 201309
  2. AZITHROMYCIN [Suspect]
     Indication: PRODUCT USED FOR UNKNOWN INDICATION
  3. ENAPREN [Concomitant]
     Indication: HYPERTENSION
     Route: 048
  4. TENORMIN [Concomitant]
     Indication: PRODUCT USED FOR UNKNOWN INDICATION
     Route: 048

REACTIONS (5)
  - Systemic lupus erythematosus [Fatal]
  - Parkinson^s disease [Unknown]
  - Drug dependence [Unknown]
  - Liver disorder [Unknown]
  - Hospitalisation [Fatal]
